FAERS Safety Report 9096567 (Version 2)
Quarter: 2013Q1

REPORT INFORMATION
  Report Type: Spontaneous
  Country: US (occurrence: US)
  Receive Date: 20130211
  Receipt Date: 20130305
  Transmission Date: 20140127
  Serious: Yes (Other)
  Sender: FDA-Public Use
  Company Number: PHEH2013US003230

PATIENT
  Age: 74 Year
  Sex: Female
  Weight: 68.11 kg

DRUGS (6)
  1. RECLAST [Suspect]
     Indication: OSTEOPOROSIS
     Dosage: 5 MG, YEARLY
     Route: 042
     Dates: start: 20121114
  2. ORENCIA [Concomitant]
     Indication: RHEUMATOID ARTHRITIS
     Dosage: 750 MG MONTHLY
     Route: 042
  3. CYMBALTA [Concomitant]
     Indication: PAIN
     Dosage: 60 MG, QD
     Route: 048
  4. ATARAX [Concomitant]
     Indication: PRURITUS
     Dosage: 25 MG, PRN
     Route: 048
  5. FLUCONAZOLE [Concomitant]
     Dosage: 200 MG, QD
  6. DOXEPIN [Concomitant]
     Indication: PRURITUS
     Dosage: APPLY DAILY, PRN
     Route: 061

REACTIONS (1)
  - Paralysis [Recovered/Resolved]
